FAERS Safety Report 16076091 (Version 1)
Quarter: 2019Q1

REPORT INFORMATION
  Report Type: Spontaneous
  Country: JP (occurrence: JP)
  Receive Date: 20190315
  Receipt Date: 20190315
  Transmission Date: 20190418
  Serious: Yes (Hospitalization, Other)
  Sender: FDA-Public Use
  Company Number: JP-ASTRAZENECA-2019SE40321

PATIENT
  Sex: Female

DRUGS (3)
  1. PRIMPERAN [Concomitant]
     Active Substance: METOCLOPRAMIDE HYDROCHLORIDE
     Dosage: DOSE UNKNOWN
     Route: 065
     Dates: start: 20190307
  2. LYNPARZA [Suspect]
     Active Substance: OLAPARIB
     Indication: BREAST CANCER FEMALE
     Route: 048
     Dates: start: 20190307
  3. LYNPARZA [Suspect]
     Active Substance: OLAPARIB
     Indication: BREAST CANCER FEMALE
     Route: 048

REACTIONS (2)
  - Nausea [Unknown]
  - Metastases to central nervous system [Unknown]

NARRATIVE: CASE EVENT DATE: 20190307
